FAERS Safety Report 17907323 (Version 1)
Quarter: 2020Q2

REPORT INFORMATION
  Report Type: Spontaneous
  Country: US (occurrence: US)
  Receive Date: 20200617
  Receipt Date: 20200617
  Transmission Date: 20200714
  Serious: Yes (Life-Threatening, Disabling, Other)
  Sender: FDA-Public Use
  Company Number: None

PATIENT
  Age: 66 Year
  Sex: Female
  Weight: 65.25 kg

DRUGS (6)
  1. NP THYROID [Concomitant]
     Active Substance: LEVOTHYROXINE\LIOTHYRONINE
  2. NP THYROID [Suspect]
     Active Substance: LEVOTHYROXINE\LIOTHYRONINE
     Indication: HYPOTHYROIDISM
     Dosage: ?          QUANTITY:1 TABLET(S);?
     Route: 048
  3. AMLODIPINE/VALSARTAN [Concomitant]
     Active Substance: AMLODIPINE\VALSARTAN
  4. ATORVASTATIN [Concomitant]
     Active Substance: ATORVASTATIN
  5. ESTRADIOL. [Concomitant]
     Active Substance: ESTRADIOL
  6. WOMEN^S MULTIVITAMINS [Concomitant]

REACTIONS (11)
  - Vomiting [None]
  - Heart rate increased [None]
  - Recalled product [None]
  - Stress [None]
  - Fatigue [None]
  - Palpitations [None]
  - Panic attack [None]
  - Muscular weakness [None]
  - Chest pain [None]
  - Hypertension [None]
  - Temperature intolerance [None]

NARRATIVE: CASE EVENT DATE: 20200511
